FAERS Safety Report 13302821 (Version 1)
Quarter: 2017Q1

REPORT INFORMATION
  Report Type: Report from Study
  Country: CN (occurrence: CN)
  Receive Date: 20170307
  Receipt Date: 20170307
  Transmission Date: 20170428
  Serious: Yes (Hospitalization)
  Sender: FDA-Public Use
  Company Number: CN-BAYER-2017-037947

PATIENT
  Sex: Male

DRUGS (1)
  1. ASPIRIN. [Suspect]
     Active Substance: ASPIRIN
     Indication: PHARYNGEAL INFLAMMATION
     Dosage: UNK

REACTIONS (6)
  - Pyrexia [None]
  - Nausea [None]
  - Dehydration [None]
  - Hypersensitivity [None]
  - Vomiting [None]
  - Paralysis [None]
